FAERS Safety Report 20202887 (Version 1)
Quarter: 2021Q4

REPORT INFORMATION
  Report Type: Spontaneous
  Country: IN (occurrence: IN)
  Receive Date: 20211218
  Receipt Date: 20211218
  Transmission Date: 20220304
  Serious: Yes (Life-Threatening, Hospitalization, Other)
  Sender: FDA-Public Use
  Company Number: IN-LUPIN PHARMACEUTICALS INC.-2021-24866

PATIENT
  Age: 8 Year
  Sex: Male

DRUGS (9)
  1. RIFAMPIN [Suspect]
     Active Substance: RIFAMPIN
     Indication: Tuberculosis
     Dosage: 450 MILLIGRAM
     Route: 065
  2. COLISTIN [Concomitant]
     Active Substance: COLISTIN
     Indication: Klebsiella infection
     Dosage: 6000000 INTERNATIONAL UNIT; LOADING DOSE
     Route: 065
  3. COLISTIN [Concomitant]
     Active Substance: COLISTIN
     Dosage: 3000000 INTERNATIONAL UNIT; MAINTENANCE DOSE
     Route: 065
  4. SULBACTAM/CEFTRIAX [Concomitant]
     Indication: Acinetobacter infection
     Dosage: 1.5 MILLIGRAM, BID
     Route: 065
  5. VANCOMYCIN [Concomitant]
     Active Substance: VANCOMYCIN
     Indication: Antibiotic therapy
     Dosage: 500 MILLIGRAM, TID
     Route: 065
  6. LEVOFLOXACIN [Concomitant]
     Active Substance: LEVOFLOXACIN
     Indication: Antibiotic therapy
     Dosage: 500 MILLIGRAM, QD
     Route: 065
  7. AMIKACIN [Concomitant]
     Active Substance: AMIKACIN
     Indication: Antibiotic therapy
     Dosage: 500 MILLIGRAM, QD
     Route: 065
  8. ETHAMBUTOL [Concomitant]
     Active Substance: ETHAMBUTOL HYDROCHLORIDE
     Indication: Tuberculosis
     Dosage: 600 MILLIGRAM, QD
     Route: 065
  9. MEROPENEM [Concomitant]
     Active Substance: MEROPENEM
     Indication: Antibiotic therapy
     Dosage: UNK
     Route: 065

REACTIONS (2)
  - Haemorrhage [Recovering/Resolving]
  - Hepatotoxicity [Unknown]
